FAERS Safety Report 8615632-4 (Version None)
Quarter: 2012Q3

REPORT INFORMATION
  Report Type: 
  Country: None (occurrence: None)
  Receive Date: 20120823
  Receipt Date: 20120814
  Transmission Date: 20120928
  Serious: Yes (Hospitalization, Other)
  Sender: FDA-Public Use
  Company Number: US-009507513-2010SP026376

PATIENT

DRUGS (2)
  1. PROVENTIL [Concomitant]
     Indication: ASTHMA
  2. NUVARING [Suspect]
     Indication: CONTRACEPTION
     Dates: start: 20080301, end: 20080501

REACTIONS (12)
  - PULMONARY EMBOLISM [None]
  - DEEP VEIN THROMBOSIS [None]
  - NIGHT SWEATS [None]
  - ABDOMINAL DISCOMFORT [None]
  - HAEMANGIOMA OF LIVER [None]
  - ABORTION MISSED [None]
  - ANXIETY [None]
  - TENSION HEADACHE [None]
  - THROMBOPHLEBITIS SUPERFICIAL [None]
  - UNINTENDED PREGNANCY [None]
  - DEPRESSION [None]
  - PYREXIA [None]
